FAERS Safety Report 20405369 (Version 28)
Quarter: 2025Q4

REPORT INFORMATION
  Report Type: Spontaneous
  Country: IN (occurrence: IN)
  Receive Date: 20220131
  Receipt Date: 20251007
  Transmission Date: 20260118
  Serious: Yes (Hospitalization, Other)
  Sender: PFIZER
  Company Number: IN-PFIZER INC-2020412633

PATIENT
  Age: 59 Year
  Sex: Female
  Weight: 72 kg

DRUGS (10)
  1. PALBOCICLIB [Suspect]
     Active Substance: PALBOCICLIB
     Indication: Breast cancer metastatic
     Dosage: 125 MG, CYCLIC (ONCE A DAY 21/28 DAYS)
     Route: 048
     Dates: start: 20190810
  2. PALBOCICLIB [Suspect]
     Active Substance: PALBOCICLIB
     Dosage: 125 MG, CYCLIC (3 MONTH(S)/TO BE TAKEN ONCE A DAY FOR 21 DAYS; THEN STOP FOR 7 DAYS)
     Route: 048
  3. LETROZOLE [Concomitant]
     Active Substance: LETROZOLE
     Indication: Breast cancer metastatic
     Dosage: 2.5 MG, 1X/DAY
     Route: 048
     Dates: start: 201908
  4. LETROZOLE [Concomitant]
     Active Substance: LETROZOLE
     Dosage: 2.5 MG, 1X/DAY (3 MONTHS)
     Route: 048
  5. GEMCAL [CALCITRIOL;CALCIUM CITRATE] [Concomitant]
     Dosage: UNK, 1X/DAY
  6. FEBUXOSTAT [Concomitant]
     Active Substance: FEBUXOSTAT
     Dosage: 40 MG, 1X/DAY
  7. SHELCAL-OS [Concomitant]
     Dosage: 1 DF, 1X/DAY
     Route: 048
  8. SHELCAL-OS [Concomitant]
     Dosage: 1 DF, 1X/DAY (3 MONTH)
     Route: 048
  9. LUMIA 60K [Concomitant]
     Dosage: 60000 IU, MONTHLY
     Route: 048
  10. LUMIA 60K [Concomitant]
     Dosage: 60000 IU, MONTHLY (3 MONTHS)
     Route: 048

REACTIONS (28)
  - COVID-19 [Unknown]
  - Renal impairment [Not Recovered/Not Resolved]
  - Fall [Unknown]
  - Humerus fracture [Unknown]
  - Haemoglobin decreased [Not Recovered/Not Resolved]
  - Neutrophil count decreased [Not Recovered/Not Resolved]
  - White blood cell count decreased [Not Recovered/Not Resolved]
  - Blood albumin decreased [Unknown]
  - Metastases to central nervous system [Unknown]
  - Malignant neoplasm progression [Unknown]
  - Cerebral ischaemia [Unknown]
  - Macrocytosis [Unknown]
  - Blood creatinine increased [Unknown]
  - Full blood count abnormal [Unknown]
  - Liver function test abnormal [Recovered/Resolved]
  - Breast pain [Unknown]
  - Blood uric acid increased [Unknown]
  - Joint stiffness [Recovered/Resolved]
  - Blood urea increased [Unknown]
  - Blood thyroid stimulating hormone increased [Unknown]
  - Blood sodium decreased [Recovered/Resolved]
  - Platelet count increased [Unknown]
  - Periarthritis [Unknown]
  - Asthenia [Unknown]
  - Mobility decreased [Unknown]
  - Mean cell haemoglobin increased [Unknown]
  - Vitamin B12 increased [Unknown]
  - Serum ferritin increased [Unknown]

NARRATIVE: CASE EVENT DATE: 20191001
